FAERS Safety Report 6552039-8 (Version None)
Quarter: 2010Q1

REPORT INFORMATION
  Report Type: 
  Country: None (occurrence: None)
  Receive Date: 20100126
  Receipt Date: 20100114
  Transmission Date: 20100710
  Serious: Yes (Hospitalization)
  Sender: FDA-Public Use
  Company Number: BE-ROCHE-588363

PATIENT
  Sex: Female
  Weight: 62 kg

DRUGS (8)
  1. CAPECITABINE [Suspect]
     Dosage: FREQ: 1225 MG BID(D1-D14 AND ONE WEEK REST Q3W) (PART OF XELOX REGIMEN)
     Route: 048
     Dates: start: 20080717, end: 20080917
  2. CAPECITABINE [Suspect]
     Route: 048
     Dates: start: 20081008, end: 20090218
  3. CAPECITABINE [Suspect]
     Dosage: RESTART DATE UNSPECIFIED
     Route: 048
     Dates: end: 20090319
  4. CAPECITABINE [Suspect]
     Dosage: DECISION ON15 APRIL 2009
     Route: 048
     Dates: start: 20090325, end: 20090407
  5. OXALIPLATIN [Suspect]
     Dosage: 85 MG/M? Q3W(XELOX-REGIMEN).
     Route: 042
     Dates: start: 20080717, end: 20080917
  6. OXALIPLATIN [Suspect]
     Route: 042
     Dates: start: 20081008, end: 20090218
  7. OXALIPLATIN [Suspect]
     Dosage: RESTART DATE NOT PROVIDED
     Route: 042
     Dates: end: 20090319
  8. OXALIPLATIN [Suspect]
     Dosage: DECISION ON 15 APRIL 2009
     Route: 042
     Dates: start: 20090325, end: 20090407

REACTIONS (5)
  - HAEMATOMA [None]
  - LEUKOPENIA [None]
  - LIVER FUNCTION TEST ABNORMAL [None]
  - NEUTROPENIC COLITIS [None]
  - THROMBOCYTOPENIA [None]
